FAERS Safety Report 7682437-0 (Version None)
Quarter: 2011Q3

REPORT INFORMATION
  Report Type: 
  Country: None (occurrence: None)
  Receive Date: 20110815
  Receipt Date: 20110808
  Transmission Date: 20111222
  Serious: Yes (Other)
  Sender: FDA-Public Use
  Company Number: GB-GENZYME-CAMP-1001815

PATIENT
  Age: 68 Year
  Sex: Female

DRUGS (3)
  1. CAMPATH [Suspect]
     Indication: MYCOSIS FUNGOIDES
     Dosage: 30 MG, QD
     Route: 058
  2. CAMPATH [Suspect]
     Indication: MYCOSIS FUNGOIDES RECURRENT
     Dosage: UNK
     Route: 065
  3. CAMPATH [Suspect]
     Dosage: UNK
     Route: 065

REACTIONS (3)
  - BETA HAEMOLYTIC STREPTOCOCCAL INFECTION [None]
  - STAPHYLOCOCCAL SKIN INFECTION [None]
  - MYCOSIS FUNGOIDES RECURRENT [None]
